FAERS Safety Report 20145277 (Version 1)
Quarter: 2021Q4

REPORT INFORMATION
  Report Type: Spontaneous
  Country: IN (occurrence: IN)
  Receive Date: 20211203
  Receipt Date: 20211203
  Transmission Date: 20220303
  Serious: Yes (Other)
  Sender: FDA-Public Use
  Company Number: IN-PFIZER INC-2019164749

PATIENT
  Age: 53 Year
  Sex: Female

DRUGS (4)
  1. PALBOCICLIB [Suspect]
     Active Substance: PALBOCICLIB
     Indication: Breast cancer metastatic
     Dosage: 125 MG, FOR 21 DAYS/28 DAYS
     Route: 048
     Dates: start: 20190204
  2. LETROZ [Concomitant]
     Dosage: 2.5 MG, 1X/DAY
  3. CALCIUM\CHOLECALCIFEROL [Concomitant]
     Active Substance: CALCIUM\CHOLECALCIFEROL
     Dosage: 500 MG, 1X/DAY
  4. PAN [Concomitant]
     Dosage: 40 1X DAY

REACTIONS (2)
  - Diabetes mellitus [Unknown]
  - Malaise [Unknown]
